FAERS Safety Report 9837882 (Version 1)
Quarter: 2013Q4

REPORT INFORMATION
  Report Type: Spontaneous
  Country: US (occurrence: None)
  Receive Date: 20131205
  Receipt Date: 20131205
  Transmission Date: 20140711
  Serious: Yes (Other)
  Sender: FDA-Public Use
  Company Number: 163-POMAL-13104015

PATIENT
  Age: 45 Year
  Sex: Female
  Weight: 72.58 kg

DRUGS (10)
  1. POMALYST [Suspect]
     Indication: PLASMA CELL MYELOMA
     Dosage: 21 IN 21 D
     Route: 048
     Dates: start: 20130609
  2. MOM/MIRALAX (MAGNESIUM HYDROXIDE) (UNKNOWN) [Concomitant]
  3. VELCADE (BORTEZOMIB) (INJECTION) [Concomitant]
  4. DEXALAN (PHENYLBUTAZONE) (UNKNOWN) [Concomitant]
  5. VITAMIN D (ERGOCALCIFEROL) (UNKNOWN) [Concomitant]
  6. XANAX (ALPRAZOLAM) (UNKNOWN) [Concomitant]
  7. FAMVIR (FAMCICLOVIR) [Concomitant]
  8. CLARITIN (LORATADINE) [Concomitant]
  9. ASPIRIN (ACEYLSALICYLIC ACID) [Concomitant]
  10. FLONASE (FLUTICASONE PROPIONATE) [Concomitant]

REACTIONS (13)
  - Abdominal distension [None]
  - Emotional disorder [None]
  - Memory impairment [None]
  - Plantar fasciitis [None]
  - Pollakiuria [None]
  - Dysphagia [None]
  - Reflux gastritis [None]
  - Tremor [None]
  - Light chain analysis increased [None]
  - Constipation [None]
  - Fatigue [None]
  - Asthenia [None]
  - Nausea [None]
